FAERS Safety Report 9109305 (Version 1)
Quarter: 2013Q1

REPORT INFORMATION
  Report Type: Spontaneous
  Country: JP (occurrence: JP)
  Receive Date: 20130222
  Receipt Date: 20130222
  Transmission Date: 20140127
  Serious: Yes (Hospitalization, Other)
  Sender: FDA-Public Use
  Company Number: PHHY2013JP014878

PATIENT
  Age: 70 Year
  Sex: Female

DRUGS (15)
  1. ZOMETA [Suspect]
     Indication: METASTASES TO BONE
     Dosage: 3.3 MG, UNK
  2. DOGMATYL [Suspect]
     Route: 048
  3. LASIX [Suspect]
     Route: 048
  4. DECADRON [Suspect]
     Dosage: 3.3 MG, UNK
  5. CARNACULIN [Concomitant]
  6. CEPHADOL [Concomitant]
  7. TAKEPRON [Concomitant]
  8. DEPAS [Concomitant]
  9. OXYCONTIN [Concomitant]
  10. CELECOX [Concomitant]
  11. FOIPAN [Concomitant]
  12. OXINORM                            /07623501/ [Concomitant]
  13. ALOSENN [Concomitant]
  14. GEMZAR [Concomitant]
  15. KYTRIL [Concomitant]

REACTIONS (5)
  - Hypocalcaemia [Unknown]
  - Electrocardiogram QT prolonged [Unknown]
  - Palpitations [Unknown]
  - Hypoaesthesia [Unknown]
  - Oedema peripheral [Unknown]
